FAERS Safety Report 24618056 (Version 3)
Quarter: 2025Q3

REPORT INFORMATION
  Report Type: Spontaneous
  Country: US (occurrence: US)
  Receive Date: 20241114
  Receipt Date: 20250930
  Transmission Date: 20251021
  Serious: Yes (Hospitalization)
  Sender: SECURA BIO
  Company Number: US-SECURA BIO, INC.-2024-SECUR-US000099

PATIENT

DRUGS (1)
  1. COPIKTRA [Suspect]
     Active Substance: DUVELISIB
     Indication: Cutaneous T-cell lymphoma
     Dosage: 25 MG, BID
     Route: 048

REACTIONS (4)
  - White blood cell count decreased [Unknown]
  - Pyrexia [Unknown]
  - Hypotension [Unknown]
  - Off label use [Unknown]
